FAERS Safety Report 11983935 (Version 1)
Quarter: 2016Q1

REPORT INFORMATION
  Report Type: Report from Study
  Country: US (occurrence: US)
  Receive Date: 20160201
  Receipt Date: 20160201
  Transmission Date: 20160526
  Serious: Yes (Hospitalization, Other)
  Sender: FDA-Public Use
  Company Number: US-JNJFOC-20151220682

PATIENT
  Age: 81 Year
  Sex: Male
  Weight: 63 kg

DRUGS (15)
  1. ALLOPURINOL. [Concomitant]
     Active Substance: ALLOPURINOL
  2. CRESTOR [Concomitant]
     Active Substance: ROSUVASTATIN CALCIUM
  3. VITAMIN C [Concomitant]
     Active Substance: ASCORBIC ACID
  4. PRESERVISION AREDS [Concomitant]
     Active Substance: MINERALS\VITAMINS
  5. LEXAPRO [Concomitant]
     Active Substance: ESCITALOPRAM OXALATE
  6. IMBRUVICA [Suspect]
     Active Substance: IBRUTINIB
     Indication: CHRONIC LYMPHOCYTIC LEUKAEMIA
     Route: 048
     Dates: start: 201512, end: 20151222
  7. VITAMIN D [Concomitant]
     Active Substance: CHOLECALCIFEROL
  8. ZOFRAN [Concomitant]
     Active Substance: ONDANSETRON HYDROCHLORIDE
  9. IMBRUVICA [Suspect]
     Active Substance: IBRUTINIB
     Indication: CHRONIC LYMPHOCYTIC LEUKAEMIA
     Route: 048
     Dates: start: 20151231, end: 20160105
  10. XARELTO [Suspect]
     Active Substance: RIVAROXABAN
     Indication: ATRIAL FIBRILLATION
     Route: 048
  11. DIGOXIN. [Concomitant]
     Active Substance: DIGOXIN
  12. LASIX [Concomitant]
     Active Substance: FUROSEMIDE
  13. IMBRUVICA [Suspect]
     Active Substance: IBRUTINIB
     Indication: CHRONIC LYMPHOCYTIC LEUKAEMIA
     Route: 048
     Dates: start: 20160106
  14. LOSARTAN. [Concomitant]
     Active Substance: LOSARTAN
  15. POTASSIUM [Concomitant]
     Active Substance: POTASSIUM

REACTIONS (5)
  - Haemoglobin decreased [Unknown]
  - Prescribed underdose [Not Recovered/Not Resolved]
  - Haematocrit decreased [Unknown]
  - Contusion [Not Recovered/Not Resolved]
  - Cardiac failure congestive [Unknown]

NARRATIVE: CASE EVENT DATE: 201512
